FAERS Safety Report 10070411 (Version 1)
Quarter: 2014Q2

REPORT INFORMATION
  Report Type: Spontaneous
  Country: US (occurrence: None)
  Receive Date: 20140409
  Receipt Date: 20140409
  Transmission Date: 20141212
  Serious: No
  Sender: FDA-Public Use
  Company Number: None

PATIENT
  Age: 57 Year
  Sex: Male

DRUGS (1)
  1. AFINITOR [Suspect]
     Route: 048

REACTIONS (6)
  - Pneumonia [None]
  - Weight decreased [None]
  - Renal failure [None]
  - Blood urine present [None]
  - Aphagia [None]
  - Therapy cessation [None]
